FAERS Safety Report 6565367-7 (Version None)
Quarter: 2010Q1

REPORT INFORMATION
  Report Type: 
  Country: None (occurrence: None)
  Receive Date: 20100201
  Receipt Date: 20100125
  Transmission Date: 20100710
  Serious: Yes (Hospitalization)
  Sender: FDA-Public Use
  Company Number: GXKR2010GB01171

PATIENT
  Age: 83 Year
  Sex: Male
  Weight: 95.9 kg

DRUGS (9)
  1. LAMOTRIGINE (NGX) [Suspect]
     Dosage: UNK
     Route: 048
     Dates: start: 20091218, end: 20100115
  2. BISOPROLOL FUMARATE [Concomitant]
  3. ENALAPRIL MALEATE [Concomitant]
  4. FLOXACILLIN SODIUM [Concomitant]
  5. FUROSEMIDE [Concomitant]
  6. HALOPERIDOL [Concomitant]
  7. PARACETAMOL [Concomitant]
  8. SIMVASTATIN [Concomitant]
  9. ZOPICLONE [Concomitant]

REACTIONS (5)
  - CARDIAC FAILURE [None]
  - OEDEMA [None]
  - RASH ERYTHEMATOUS [None]
  - RASH PRURITIC [None]
  - SKIN EXFOLIATION [None]
